FAERS Safety Report 6064777-4 (Version None)
Quarter: 2009Q1

REPORT INFORMATION
  Report Type: 
  Country: None (occurrence: None)
  Receive Date: 20090204
  Receipt Date: 20090123
  Transmission Date: 20090719
  Serious: Yes (Hospitalization)
  Sender: FDA-Public Use
  Company Number: FR-PFIZER INC-2008093273

PATIENT

DRUGS (5)
  1. SUTENT [Suspect]
     Indication: RENAL CANCER METASTATIC
     Dosage: 50 MG CYCLIC, UNK
     Route: 048
     Dates: start: 20080925
  2. LEVOTHYROXINE SODIUM [Concomitant]
     Dosage: UNK
  3. IRBESARTAN [Concomitant]
     Dosage: UNK
  4. METFORMIN [Concomitant]
     Dosage: UNK
  5. PARACETAMOL [Concomitant]

REACTIONS (4)
  - CONSTIPATION [None]
  - RENAL FAILURE [None]
  - RENAL IMPAIRMENT [None]
  - VOMITING [None]
